FAERS Safety Report 11195957 (Version 1)
Quarter: 2015Q2

REPORT INFORMATION
  Report Type: Spontaneous
  Country: US (occurrence: None)
  Receive Date: 20150616
  Receipt Date: 20150616
  Transmission Date: 20150821
  Serious: Yes (Hospitalization)
  Sender: FDA-Public Use
  Company Number: None

PATIENT
  Age: 57 Year
  Sex: Male
  Weight: 97 kg

DRUGS (1)
  1. HYDROCHLOROTHIAZIDE/LISINOPRIL [Suspect]
     Active Substance: HYDROCHLOROTHIAZIDE\LISINOPRIL
     Indication: HYPERTENSION
     Route: 048
     Dates: start: 20141208, end: 20150303

REACTIONS (8)
  - Angioedema [None]
  - Hyponatraemia [None]
  - Dysphagia [None]
  - Hypophagia [None]
  - Nausea [None]
  - Diarrhoea [None]
  - Acute kidney injury [None]
  - Abdominal discomfort [None]

NARRATIVE: CASE EVENT DATE: 20150303
